FAERS Safety Report 8297613-6 (Version None)
Quarter: 2012Q2

REPORT INFORMATION
  Report Type: 
  Country: None (occurrence: None)
  Receive Date: 20120419
  Receipt Date: 20120409
  Transmission Date: 20120825
  Serious: Yes (Disabling)
  Sender: FDA-Public Use
  Company Number: JP-JNJFOC-20120403469

PATIENT
  Age: 70 Year
  Sex: Female
  Weight: 100 kg

DRUGS (2)
  1. RISPERDAL [Suspect]
     Indication: SCHIZOPHRENIA
     Route: 048
     Dates: start: 20110721
  2. LEVOMEPROMAZINE MALEATE [Concomitant]
     Route: 048
     Dates: start: 20110721

REACTIONS (5)
  - HYPERKALAEMIA [None]
  - RENAL IMPAIRMENT [None]
  - HYPONATRAEMIA [None]
  - HYPOTENSION [None]
  - LOSS OF CONSCIOUSNESS [None]
